FAERS Safety Report 5219049-4 (Version None)
Quarter: 2007Q1

REPORT INFORMATION
  Report Type: 
  Country: None (occurrence: None)
  Receive Date: 20070124
  Receipt Date: 20070124
  Transmission Date: 20070707
  Serious: Yes (Other)
  Sender: FDA-Public Use
  Company Number: None

PATIENT
  Age: 26 Year
  Sex: Female
  Weight: 83.9154 kg

DRUGS (6)
  1. LEXAPRO [Suspect]
     Indication: ANXIETY
     Dosage: 10MG DAILY PO
     Route: 048
     Dates: start: 20061101
  2. XANAX [Suspect]
     Dosage: 1MG OR LESS PRN PO
     Route: 048
     Dates: start: 20061101
  3. BIRTH CONTROL PILLS -KARIVA- [Concomitant]
  4. ZYRTEC-D [Concomitant]
  5. BENADRYL [Concomitant]
  6. IBUPROFEN [Concomitant]

REACTIONS (6)
  - DIZZINESS [None]
  - ERYTHEMA [None]
  - HYPERHIDROSIS [None]
  - JOINT SWELLING [None]
  - NAUSEA [None]
  - SUNBURN [None]
